FAERS Safety Report 7103138-3 (Version None)
Quarter: 2010Q4

REPORT INFORMATION
  Report Type: 
  Country: None (occurrence: None)
  Receive Date: 20101115
  Receipt Date: 20101101
  Transmission Date: 20110411
  Serious: Yes (Hospitalization)
  Sender: FDA-Public Use
  Company Number: US-BAYER-201034750NA

PATIENT
  Age: 19 Year
  Sex: Female
  Weight: 98 kg

DRUGS (7)
  1. YAZ [Suspect]
     Indication: CONTRACEPTION
     Dates: start: 20080501, end: 20100301
  2. YAZ [Suspect]
     Dates: start: 20080501, end: 20100401
  3. YASMIN [Suspect]
     Indication: PRODUCT USED FOR UNKNOWN INDICATION
     Dates: start: 20080501, end: 20100401
  4. ASTHMA MEDICATION [Concomitant]
     Dates: start: 20030401
  5. ASCORBIC ACID [Concomitant]
  6. MOTRIN [Concomitant]
  7. ADVIL [Concomitant]

REACTIONS (6)
  - ABDOMINAL PAIN UPPER [None]
  - CHOLECYSTITIS CHRONIC [None]
  - CHOLELITHIASIS [None]
  - DYSPEPSIA [None]
  - GALLBLADDER CHOLESTEROLOSIS [None]
  - PROCEDURAL PAIN [None]
